FAERS Safety Report 9310237 (Version 1)
Quarter: 2013Q2

REPORT INFORMATION
  Report Type: Spontaneous
  Country: CN (occurrence: CN)
  Receive Date: 20130527
  Receipt Date: 20130527
  Transmission Date: 20140414
  Serious: Yes (Other)
  Sender: FDA-Public Use
  Company Number: PHHY2013CN050811

PATIENT
  Age: 45 Year
  Sex: Female

DRUGS (3)
  1. SANDOSTATIN LAR [Suspect]
     Indication: PANCREATIC NEUROENDOCRINE TUMOUR
     Dosage: 20 MG, EVERY 28 DAYS
  2. SANDOSTATIN LAR [Suspect]
     Dosage: 20 MG, EVERY 21 DAYS
  3. SANDOSTATIN LAR [Suspect]
     Dosage: 20 MG, EVERY 14 DAYS

REACTIONS (11)
  - Hypercalcaemia [Unknown]
  - Necrolytic migratory erythema [Unknown]
  - Blood parathyroid hormone decreased [Unknown]
  - Blood calcium decreased [Unknown]
  - Bone disorder [Unknown]
  - Blood glucagon increased [Unknown]
  - Osteoporosis [Unknown]
  - Glossitis [Unknown]
  - Tongue disorder [Unknown]
  - Pain in jaw [Unknown]
  - Rash [Unknown]
